FAERS Safety Report 9653328 (Version 9)
Quarter: 2015Q3

REPORT INFORMATION
  Report Type: Report from Study
  Country: CA (occurrence: CA)
  Receive Date: 20131029
  Receipt Date: 20150901
  Transmission Date: 20151125
  Serious: Yes (Hospitalization, Other)
  Sender: FDA-Public Use
  Company Number: CA-ROCHE-1138009

PATIENT
  Age: 67 Year
  Sex: Female
  Weight: 69.4 kg

DRUGS (17)
  1. APO-SERTRALINE [Concomitant]
     Active Substance: SERTRALINE HYDROCHLORIDE
  2. DIGOXIN. [Concomitant]
     Active Substance: DIGOXIN
  3. METHOTREXATE [Concomitant]
     Active Substance: METHOTREXATE
  4. METHYLPREDNISOLONE. [Concomitant]
     Active Substance: METHYLPREDNISOLONE
     Route: 042
     Dates: start: 20120719, end: 20120719
  5. DIPHENHYDRAMINE HCL [Concomitant]
     Active Substance: DIPHENHYDRAMINE HYDROCHLORIDE
     Indication: PREMEDICATION
     Route: 048
     Dates: start: 20091208
  6. DIPHENHYDRAMINE HCL [Concomitant]
     Active Substance: DIPHENHYDRAMINE HYDROCHLORIDE
     Route: 048
     Dates: start: 20120719, end: 20120719
  7. RITUXAN [Suspect]
     Active Substance: RITUXIMAB
     Indication: RHEUMATOID ARTHRITIS
     Dosage: LAST DOSE: 10/JUN/2014: DATE OF LAST DOSE 09/DEC/2014
     Route: 042
     Dates: start: 20091208
  8. ACETAMINOPHEN. [Concomitant]
     Active Substance: ACETAMINOPHEN
     Route: 048
     Dates: start: 20091208
  9. PREDNISONE. [Concomitant]
     Active Substance: PREDNISONE
  10. COUMADIN [Concomitant]
     Active Substance: WARFARIN SODIUM
  11. FOSAMAX [Concomitant]
     Active Substance: ALENDRONATE SODIUM
  12. RANITIDINE [Concomitant]
     Active Substance: RANITIDINE\RANITIDINE HYDROCHLORIDE
     Route: 065
     Dates: end: 2013
  13. METHYLPREDNISOLONE. [Concomitant]
     Active Substance: METHYLPREDNISOLONE
     Route: 042
     Dates: start: 20091208
  14. ACETAMINOPHEN. [Concomitant]
     Active Substance: ACETAMINOPHEN
     Route: 048
     Dates: start: 20120719, end: 20120719
  15. FUROSEMIDE. [Concomitant]
     Active Substance: FUROSEMIDE
  16. LASIX [Concomitant]
     Active Substance: FUROSEMIDE
     Route: 065
     Dates: start: 20131103
  17. RABEPRAZOLE [Concomitant]
     Active Substance: RABEPRAZOLE

REACTIONS (11)
  - Rash [Recovered/Resolved]
  - Pulmonary oedema [Unknown]
  - Atrial fibrillation [Unknown]
  - Pneumonia [Recovered/Resolved]
  - Oral pruritus [Unknown]
  - Fatigue [Unknown]
  - Chest discomfort [Recovering/Resolving]
  - Throat irritation [Unknown]
  - Infusion related reaction [Unknown]
  - Cardiac failure congestive [Unknown]
  - Medication error [Unknown]

NARRATIVE: CASE EVENT DATE: 20091209
